FAERS Safety Report 8646644 (Version 6)
Quarter: 2014Q1

REPORT INFORMATION
  Report Type: Report from Study
  Country: NL (occurrence: NL)
  Receive Date: 20120703
  Receipt Date: 20140211
  Transmission Date: 20141002
  Serious: Yes (Hospitalization, Other)
  Sender: FDA-Public Use
  Company Number: NL-AMGEN-NLDCT2012018851

PATIENT
  Age: 65 Year
  Sex: Female
  Weight: 75 kg

DRUGS (54)
  1. PEGFILGRASTIM [Suspect]
     Indication: DIFFUSE LARGE B-CELL LYMPHOMA
     Dosage: 6 MG, UNK
     Route: 058
     Dates: start: 20120220
  2. PEGFILGRASTIM [Suspect]
     Dosage: 6 MG, DAY 1 OF THE 2 WEEK CYCLE.
     Route: 058
     Dates: start: 20120224
  3. PEGFILGRASTIM [Suspect]
     Dosage: 6 MG, DAY 1 OF THE 2 WEEK CYCLE
     Route: 058
     Dates: start: 20120324
  4. PEGFILGRASTIM [Suspect]
     Dosage: 6 MG, UNK
     Route: 058
     Dates: start: 20120407
  5. PEGFILGRASTIM [Suspect]
     Dosage: 6 MG, UNK
     Route: 058
     Dates: start: 20120505
  6. PEGFILGRASTIM [Suspect]
     Dosage: 6 MG, UNK
     Route: 058
     Dates: start: 20120526
  7. RITUXIMAB [Suspect]
     Indication: DIFFUSE LARGE B-CELL LYMPHOMA
     Dosage: 750 MG, UNK
     Route: 042
     Dates: start: 20120220
  8. RITUXIMAB [Suspect]
     Dosage: 700 MG, DAY 1 OF THE 2 WEEK CYCLE
     Route: 042
     Dates: start: 20120223
  9. RITUXIMAB [Suspect]
     Dosage: 700 MG, DAY 1 OF THE 2 WEEK CYCLE
     Route: 042
     Dates: start: 20120322
  10. RITUXIMAB [Suspect]
     Dosage: 700 MG, UNK
     Route: 042
     Dates: start: 20120406
  11. RITUXIMAB [Suspect]
     Dosage: 700 MG, DAY 1 OF THE 2 WEEK CYCLE
     Route: 042
     Dates: start: 20120504
  12. RITUXIMAB [Suspect]
     Dosage: 606 MG, UNK
     Route: 042
     Dates: start: 20120525
  13. RITUXIMAB [Suspect]
     Dosage: UNK
     Route: 042
     Dates: start: 20120615
  14. CYCLOPHOSPHAMIDE [Suspect]
     Indication: DIFFUSE LARGE B-CELL LYMPHOMA
     Dosage: 1500 MG, UNK
     Route: 042
     Dates: start: 20120220
  15. CYCLOPHOSPHAMIDE [Suspect]
     Dosage: 1400 MG, DAY 1 OF THE 2 WEEK CYCLE
     Route: 042
     Dates: start: 20120323
  16. CYCLOPHOSPHAMIDE [Suspect]
     Dosage: 1400 MG, UNK
     Route: 042
     Dates: start: 20120406
  17. CYCLOPHOSPHAMIDE [Suspect]
     Dosage: 1400 MG, DAY 1 OF THE 2 WEEK CYCLE
     Route: 042
     Dates: start: 20120504
  18. CYCLOPHOSPHAMIDE [Suspect]
     Dosage: 1372 MG, UNK
     Route: 042
     Dates: start: 20120525
  19. CYCLOPHOSPHAMIDE [Suspect]
     Dosage: 1400 MG, DAY 1 OF THE 2 WEEK CYCLE
     Route: 042
     Dates: start: 20120615
  20. CYCLOPHOSPHAMIDE [Suspect]
     Dosage: 1372 MG, UNK
     Route: 042
     Dates: start: 20120615
  21. DOXORUBICIN [Suspect]
     Indication: DIFFUSE LARGE B-CELL LYMPHOMA
     Dosage: 100 MG, UNK
     Route: 042
     Dates: start: 20120220
  22. DOXORUBICIN [Suspect]
     Dosage: 95 MG, DAY 1 OF THE 2 WEEK CYCLE
     Route: 042
     Dates: start: 20120223
  23. DOXORUBICIN [Suspect]
     Dosage: 95 MG, DAY 1 OF THE 2 WEEK CYCLE
     Route: 042
     Dates: start: 20120323
  24. DOXORUBICIN [Suspect]
     Dosage: 95 MG, UNK
     Route: 042
     Dates: start: 20120406
  25. DOXORUBICIN [Suspect]
     Dosage: 95 MG, DAY 1 OF THE 2 WEEK CYCLE
     Route: 042
     Dates: start: 20120504
  26. DOXORUBICIN [Suspect]
     Dosage: 92 MG, UNK
     Route: 042
     Dates: start: 20120525
  27. DOXORUBICIN [Suspect]
     Dosage: 92 MG, UNK
     Route: 042
     Dates: start: 20120615
  28. PREDNISONE [Suspect]
     Indication: DIFFUSE LARGE B-CELL LYMPHOMA
     Dosage: 100 MG, UNK
     Route: 048
     Dates: start: 20120220
  29. PREDNISONE [Suspect]
     Dosage: 100 MG, DAYS 1-5 OF THE 2 WEEK CYCLE
     Route: 048
     Dates: start: 20120223
  30. PREDNISONE [Suspect]
     Dosage: 100 MG, DAYS 1-5 OF THE 2 WEEK CYCLE
     Route: 042
     Dates: start: 20120323
  31. PREDNISONE [Suspect]
     Dosage: 100 MG, UNK
     Route: 048
     Dates: start: 20120406
  32. PREDNISONE [Suspect]
     Dosage: 100 MG, DAYS 1-5 OF THE 2 WEEK CYCLE
     Route: 042
     Dates: start: 20120504
  33. PREDNISONE [Suspect]
     Dosage: 100 MG, UNK
     Route: 048
     Dates: start: 20120525
  34. PREDNISONE [Suspect]
     Dosage: 100 MG, UNK
     Route: 048
     Dates: start: 20120615
  35. VINCRISTINE [Suspect]
     Indication: DIFFUSE LARGE B-CELL LYMPHOMA
     Dosage: 2 MG, UNK
     Route: 042
     Dates: start: 20120221
  36. VINCRISTINE [Suspect]
     Dosage: 2 MG, DAY 1 OF THE 2 WEEK CYCLE
     Route: 042
     Dates: start: 20120223
  37. VINCRISTINE [Suspect]
     Dosage: 2 MG, DAY 1 OF THE 2 WEEK CYCLE
     Route: 042
     Dates: start: 20120323
  38. VINCRISTINE [Suspect]
     Dosage: 2 MG, UNK
     Route: 042
     Dates: start: 20120406
  39. VINCRISTINE [Suspect]
     Dosage: 20 MG, DAY 1 OF THE 2 WEEK CYCLE
     Route: 042
     Dates: start: 20120504
  40. VINCRISTINE [Suspect]
     Dosage: 2 MG, UNK
     Route: 042
     Dates: start: 20120525
  41. VINCRISTINE [Suspect]
     Dosage: 2 MG, UNK
     Route: 042
     Dates: start: 20120615
  42. CARBASALATE CALCIUM [Concomitant]
     Indication: EMBOLISM
     Dosage: 100 MG, UNK
     Route: 048
  43. CARBASALATE CALCIUM [Concomitant]
     Indication: TRANSIENT ISCHAEMIC ATTACK
  44. TRAMADOL [Concomitant]
     Indication: PAIN
     Dosage: 50 MG, WHEN NEEDED
     Route: 048
     Dates: start: 20120406, end: 20120602
  45. TRAMADOL [Concomitant]
     Dosage: UNK
     Route: 048
  46. PANTOPRAZOLE [Concomitant]
     Dosage: 40 MG, UNK
     Route: 048
     Dates: start: 20111031, end: 20120602
  47. PARACETAMOL [Concomitant]
     Indication: PAIN
     Dosage: UNK UNK, WHEN NEEDED
     Route: 048
  48. HYDROCHLOROTHIAZIDE [Concomitant]
     Indication: HYPERTENSION
     Dosage: 12.5 MG, UNK
     Route: 048
     Dates: start: 20111031
  49. ENALAPRIL [Concomitant]
     Indication: HYPERTENSION
     Dosage: 10 MG, UNK
     Route: 048
     Dates: start: 20111031
  50. EMEND [Concomitant]
     Indication: PROPHYLAXIS
     Dosage: 125.8 MG, UNK
     Route: 048
     Dates: start: 20120323
  51. ZOLPIDEM TARTATE [Concomitant]
     Indication: SLEEP DISORDER
     Dosage: 10 MG, UNK
     Route: 048
     Dates: start: 20111031
  52. MOVICOLON [Concomitant]
     Dosage: 1 SACHET, DAILY
     Route: 048
     Dates: start: 20120323, end: 20120602
  53. ASPIRIN [Concomitant]
     Dosage: 80 MG, QD
     Route: 048
     Dates: start: 20111031, end: 20120602
  54. AUGMENTIN [Concomitant]
     Indication: URINARY TRACT INFECTION
     Dosage: UNK
     Route: 042
     Dates: start: 20120220

REACTIONS (5)
  - Gastric ulcer [Recovered/Resolved]
  - Febrile neutropenia [Recovered/Resolved]
  - Abdominal pain [Recovered/Resolved]
  - Diarrhoea [Not Recovered/Not Resolved]
  - Pneumonia [Recovered/Resolved]
